FAERS Safety Report 13234716 (Version 2)
Quarter: 2017Q1

REPORT INFORMATION
  Report Type: Spontaneous
  Country: BR (occurrence: BR)
  Receive Date: 20170215
  Receipt Date: 20170309
  Transmission Date: 20170428
  Serious: Yes (Other)
  Sender: FDA-Public Use
  Company Number: BR-ASTRAZENECA-2017SE15275

PATIENT
  Age: 21401 Day
  Sex: Female
  Weight: 85 kg

DRUGS (9)
  1. IRESSA [Suspect]
     Active Substance: GEFITINIB
     Indication: LUNG ADENOCARCINOMA
     Route: 048
     Dates: start: 20161203, end: 20170122
  2. PANTOZOL [Concomitant]
     Active Substance: PANTOPRAZOLE SODIUM
     Indication: PULMONARY SEPSIS
     Route: 042
     Dates: start: 20161222, end: 20161231
  3. HEMAX [Concomitant]
     Route: 058
     Dates: start: 20161215, end: 20170105
  4. ZYVOX [Concomitant]
     Active Substance: LINEZOLID
     Dosage: 2 MG/DL
     Route: 042
     Dates: start: 20161210, end: 20170110
  5. MERONEM [Suspect]
     Active Substance: MEROPENEM
     Indication: PULMONARY SEPSIS
     Dosage: 1 G, DOSING UNKNOWN
     Route: 042
     Dates: start: 20161125, end: 20170108
  6. PLASIL [Concomitant]
     Active Substance: METOCLOPRAMIDE HYDROCHLORIDE
     Dosage: 5 ML
     Route: 042
     Dates: start: 20161125, end: 20161224
  7. ENDOFOLIN [Concomitant]
     Active Substance: FOLIC ACID
     Dosage: ENTHERAL CATHETER
     Dates: start: 20161216, end: 20170112
  8. DIGESAN [Concomitant]
     Active Substance: BROMOPRIDE
     Dosage: 5 ML
     Route: 042
     Dates: start: 20161125, end: 20170112
  9. SEROQUEL [Suspect]
     Active Substance: QUETIAPINE FUMARATE
     Indication: PULMONARY SEPSIS
     Dosage: 25 MG, ENTERAL CATHETER
     Route: 048
     Dates: start: 20161122, end: 20170120

REACTIONS (8)
  - Gastritis haemorrhagic [Unknown]
  - Pseudomonas infection [Unknown]
  - Klebsiella infection [Unknown]
  - Candida infection [Unknown]
  - Erythema [Recovered/Resolved]
  - Haemoglobin decreased [Unknown]
  - Off label use [Recovered/Resolved]
  - Product use issue [Recovered/Resolved]

NARRATIVE: CASE EVENT DATE: 20160107
